FAERS Safety Report 9212866 (Version 1)
Quarter: 2013Q2

REPORT INFORMATION
  Report Type: Spontaneous
  Country: IT (occurrence: IT)
  Receive Date: 20130405
  Receipt Date: 20130405
  Transmission Date: 20140414
  Serious: Yes (Other)
  Sender: FDA-Public Use
  Company Number: IT-JNJFOC-20130318759

PATIENT
  Age: 62 Year
  Sex: Female

DRUGS (9)
  1. SIMPONI [Suspect]
     Indication: PSORIATIC ARTHROPATHY
     Dosage: ^CYCLICAL^
     Route: 058
     Dates: start: 20120301, end: 20130304
  2. NOVORAPID [Concomitant]
     Indication: DIABETES MELLITUS
     Route: 065
  3. METHOTREXATE SODIUM [Concomitant]
     Indication: PSORIATIC ARTHROPATHY
     Route: 065
  4. FOSAVANCE [Concomitant]
     Indication: OSTEOPOROSIS PROPHYLAXIS
     Route: 065
  5. CYMBALTA [Concomitant]
     Indication: BIPOLAR I DISORDER
     Route: 065
  6. CIPRALEX [Concomitant]
     Indication: BIPOLAR I DISORDER
     Route: 065
  7. LAMICTAL [Concomitant]
     Indication: BIPOLAR I DISORDER
     Route: 065
  8. LAMICTAL [Concomitant]
     Indication: MEDICAL DIET
     Route: 065
  9. FOLINA [Concomitant]
     Indication: FOLATE DEFICIENCY
     Route: 065

REACTIONS (1)
  - Rectal adenocarcinoma [Not Recovered/Not Resolved]
